FAERS Safety Report 9793355 (Version 1)
Quarter: 2014Q1

REPORT INFORMATION
  Report Type: Spontaneous
  Country: BR (occurrence: BR)
  Receive Date: 20140102
  Receipt Date: 20140102
  Transmission Date: 20141002
  Serious: Yes (Death)
  Sender: FDA-Public Use
  Company Number: BR-PFIZER INC-2013374590

PATIENT
  Age: 83 Year
  Sex: Female

DRUGS (3)
  1. NORVASC [Suspect]
     Dosage: 1 DF, DAILY
     Route: 048
     Dates: start: 19960101
  2. LIPITOR [Concomitant]
  3. XALATAN [Concomitant]

REACTIONS (2)
  - Death [Fatal]
  - Cardiac disorder [Unknown]
